FAERS Safety Report 25722115 (Version 1)
Quarter: 2025Q3

REPORT INFORMATION
  Report Type: Spontaneous
  Country: US (occurrence: None)
  Receive Date: 20250825
  Receipt Date: 20250825
  Transmission Date: 20251020
  Serious: Yes (Hospitalization)
  Sender: FDA-CTU
  Company Number: None

PATIENT
  Sex: Female

DRUGS (10)
  1. EVEROLIMUS [Suspect]
     Active Substance: EVEROLIMUS
     Indication: Tuberous sclerosis complex
     Dosage: FREQUENCY : EVERY OTHER DAY;?
     Route: 048
  2. AMITRIPTYLINE [Concomitant]
     Active Substance: AMITRIPTYLINE
  3. CLARINEX [Concomitant]
     Active Substance: DESLORATADINE
  4. CLONAZEPAM [Concomitant]
     Active Substance: CLONAZEPAM
  5. IBUPROFEN SUS [Concomitant]
  6. KEPPRA SOL [Concomitant]
  7. KLONOPIN [Concomitant]
     Active Substance: CLONAZEPAM
  8. LEVETIRACETAM [Concomitant]
     Active Substance: LEVETIRACETAM
  9. MELATONIN [Concomitant]
     Active Substance: MELATONIN
  10. OXYCARBAZEPIN [Concomitant]

REACTIONS (1)
  - Hospitalisation [None]
